FAERS Safety Report 10488013 (Version 3)
Quarter: 2015Q1

REPORT INFORMATION
  Report Type: Spontaneous
  Country: US (occurrence: US)
  Receive Date: 20141001
  Receipt Date: 20150317
  Transmission Date: 20150720
  Serious: Yes (Hospitalization)
  Sender: FDA-Public Use
  Company Number: US-ACTELION-A-US2014-105761

PATIENT
  Age: 43 Year
  Sex: Female

DRUGS (12)
  1. REVATIO [Concomitant]
     Active Substance: SILDENAFIL CITRATE
  2. ZOLOFT [Concomitant]
     Active Substance: SERTRALINE HYDROCHLORIDE
  3. RENVELA [Concomitant]
     Active Substance: SEVELAMER CARBONATE
  4. OPSUMIT [Suspect]
     Active Substance: MACITENTAN
     Indication: PULMONARY ARTERIAL HYPERTENSION
     Dosage: 10 MG, QD
     Route: 048
     Dates: start: 20140203
  5. AMIODARONE [Concomitant]
     Active Substance: AMIODARONE
  6. OXYCONTIN [Concomitant]
     Active Substance: OXYCODONE HYDROCHLORIDE
  7. MIDODRINE [Concomitant]
     Active Substance: MIDODRINE
  8. XANAX [Concomitant]
     Active Substance: ALPRAZOLAM
  9. MORPHINE SULFATE. [Concomitant]
     Active Substance: MORPHINE SULFATE
  10. PRILOSEC [Concomitant]
     Active Substance: OMEPRAZOLE MAGNESIUM
  11. LEVOTHYROXINE [Concomitant]
     Active Substance: LEVOTHYROXINE
  12. WELLBUTRIN [Concomitant]
     Active Substance: BUPROPION HYDROCHLORIDE

REACTIONS (3)
  - Sickle cell anaemia [Not Recovered/Not Resolved]
  - Condition aggravated [Not Recovered/Not Resolved]
  - Transfusion [Not Recovered/Not Resolved]
